FAERS Safety Report 4837208-7 (Version None)
Quarter: 2005Q4

REPORT INFORMATION
  Report Type: 
  Country: None (occurrence: None)
  Receive Date: 20051122
  Receipt Date: 20051110
  Transmission Date: 20060501
  Serious: Yes (Hospitalization)
  Sender: FDA-Public Use
  Company Number: 2005-02377

PATIENT
  Age: 77 Year
  Sex: Female

DRUGS (18)
  1. VELCADE [Suspect]
     Indication: MULTIPLE MYELOMA
     Dosage: 2.20 MG, INTRAVENOUS
     Route: 042
     Dates: start: 20050315
  2. HEPARIN [Concomitant]
  3. ZOFRAN [Concomitant]
  4. DEXAMETHASONE [Concomitant]
  5. D5 1/2 (GLUCOSE, CALCIUM CHLORIDE DIHYDRATE, SODIUM LACTATE, POTASSIUM [Concomitant]
  6. ZOMETA [Concomitant]
  7. SODIUM CHLORIDE [Concomitant]
  8. CENTRUM SILVER [Concomitant]
  9. PLAVIX [Concomitant]
  10. MAGNESIUM CHLORIDE ANHYDROUS [Concomitant]
  11. LABETALOL HCL [Concomitant]
  12. ASPIRIN [Concomitant]
  13. LIPITOR [Concomitant]
  14. IBUPROFEN [Concomitant]
  15. NASACOR (TRIAMCINOLONE ACETONIDE) [Concomitant]
  16. LORATADINE [Concomitant]
  17. DARVOCET-N PARACETAMOL, DEXTROPPROPOXYPHENE NAPSILATE) [Concomitant]
  18. HYDROCHLOROTHIAZIDE [Concomitant]

REACTIONS (2)
  - ANGINA PECTORIS [None]
  - CORONARY ARTERY DISEASE [None]
